FAERS Safety Report 21243867 (Version 1)
Quarter: 2022Q3

REPORT INFORMATION
  Report Type: Report from Study
  Country: EG (occurrence: EG)
  Receive Date: 20220823
  Receipt Date: 20220823
  Transmission Date: 20221026
  Serious: Yes (Other)
  Sender: FDA-Public Use
  Company Number: EG-NOVARTISPH-NVSC2022EG186601

PATIENT
  Age: 36 Year
  Sex: Male

DRUGS (3)
  1. GILENYA [Suspect]
     Active Substance: FINGOLIMOD HYDROCHLORIDE
     Indication: Multiple sclerosis
     Dosage: 0.5 MG, QD
     Route: 048
     Dates: start: 202007
  2. VITAMIN B [Concomitant]
     Active Substance: VITAMIN B
     Indication: Neuralgia
     Dosage: UNK, BID
     Route: 048
     Dates: start: 2009
  3. OMEGA 3 [Concomitant]
     Active Substance: CAPSAICIN
     Indication: Supplementation therapy
     Dosage: UNK, QD
     Route: 048
     Dates: start: 2009

REACTIONS (4)
  - Anxiety [Not Recovered/Not Resolved]
  - Muscle spasms [Not Recovered/Not Resolved]
  - Fall [Not Recovered/Not Resolved]
  - Disturbance in attention [Not Recovered/Not Resolved]

NARRATIVE: CASE EVENT DATE: 20220816
